FAERS Safety Report 7987544-0 (Version None)
Quarter: 2011Q4

REPORT INFORMATION
  Report Type: 
  Country: None (occurrence: None)
  Receive Date: 20111216
  Receipt Date: 20111212
  Transmission Date: 20120403
  Serious: Yes (Other)
  Sender: FDA-Public Use
  Company Number: CN-ASTRAZENECA-2011SE74842

PATIENT
  Age: 42 Year
  Sex: Female

DRUGS (2)
  1. ANASTROZOLE [Concomitant]
     Indication: BREAST CANCER
  2. ZOLADEX [Suspect]
     Indication: BREAST CANCER
     Route: 058
     Dates: start: 20110825, end: 20111125

REACTIONS (2)
  - BRAIN MASS [None]
  - PITUITARY HAEMORRHAGE [None]
